FAERS Safety Report 9782557 (Version 1)
Quarter: 2013Q4

REPORT INFORMATION
  Report Type: Spontaneous
  Country: FI (occurrence: FI)
  Receive Date: 20131226
  Receipt Date: 20131226
  Transmission Date: 20140711
  Serious: Yes (Life-Threatening, Hospitalization)
  Sender: FDA-Public Use
  Company Number: PHHY2013FI151157

PATIENT
  Sex: 0

DRUGS (1)
  1. LEPONEX [Suspect]
     Dosage: 0.25 DF, QD (AUG/SEP 2013)
     Route: 048

REACTIONS (3)
  - Depressed level of consciousness [Unknown]
  - Drug abuse [Unknown]
  - Wrong technique in drug usage process [Unknown]
